FAERS Safety Report 13609427 (Version 2)
Quarter: 2017Q2

REPORT INFORMATION
  Report Type: Spontaneous
  Country: US (occurrence: US)
  Receive Date: 20170602
  Receipt Date: 20170606
  Transmission Date: 20170830
  Serious: No
  Sender: FDA-Public Use
  Company Number: US-PFIZER INC-2860511

PATIENT
  Sex: Female

DRUGS (1)
  1. KETOROLAC TROMETHAMINE. [Suspect]
     Active Substance: KETOROLAC TROMETHAMINE
     Indication: PRODUCT USED FOR UNKNOWN INDICATION
     Dosage: FREQ: 1 WEEK; INTERVAL: 1

REACTIONS (9)
  - Product use issue [Unknown]
  - Hypertension [Unknown]
  - Blood glucose increased [Unknown]
  - Product quality issue [Unknown]
  - Thrombosis [Unknown]
  - Abdominal distension [Unknown]
  - Feeling hot [Unknown]
  - Limb mass [Unknown]
  - Peripheral swelling [Unknown]

NARRATIVE: CASE EVENT DATE: 20150101
